FAERS Safety Report 9631752 (Version 2)
Quarter: 2013Q4

REPORT INFORMATION
  Report Type: Spontaneous
  Country: AU (occurrence: None)
  Receive Date: 20131015
  Receipt Date: 20131022
  Transmission Date: 20140711
  Serious: Yes (Other)
  Sender: FDA-Public Use
  Company Number: AUR-APL-2013-08457

PATIENT
  Age: 57 Year
  Sex: Female

DRUGS (6)
  1. OLANZAPINE [Suspect]
     Indication: SCHIZOPHRENIA
  2. CHLORPROMAZINE [Suspect]
     Indication: SCHIZOPHRENIA
  3. MOVICOL [Suspect]
     Indication: CONSTIPATION
     Dosage: 3 SACHETS
  4. ACTILAX [Suspect]
     Indication: CONSTIPATION
  5. BENZTROPINE [Suspect]
     Indication: TREMOR
     Dosage: 4 MG (2 MG,2 IN 1 D)
  6. MAGNESIUM PELLEGRINO (MAGNESIUM) [Concomitant]

REACTIONS (5)
  - Tremor [None]
  - Musculoskeletal stiffness [None]
  - Musculoskeletal stiffness [None]
  - Eye movement disorder [None]
  - Extrapyramidal disorder [None]
